FAERS Safety Report 20037735 (Version 1)
Quarter: 2021Q4

REPORT INFORMATION
  Report Type: Spontaneous
  Country: US (occurrence: US)
  Receive Date: 20211105
  Receipt Date: 20211105
  Transmission Date: 20220303
  Serious: Yes (Other)
  Sender: FDA-Public Use
  Company Number: US-HQ SPECIALTY-US-2021INT000209

PATIENT
  Age: 32 Year
  Sex: Male

DRUGS (1)
  1. DEXMEDETOMIDINE HYDROCHLORIDE [Suspect]
     Active Substance: DEXMEDETOMIDINE HYDROCHLORIDE
     Indication: Sedative therapy
     Dosage: 0.2 MCG/KG/HR AND UP-TITRATED TO 0.8 MCG/KG/HR
     Route: 065

REACTIONS (5)
  - Diabetes insipidus [Unknown]
  - Torsade de pointes [Unknown]
  - Hypernatraemia [Unknown]
  - Hypokalaemia [Unknown]
  - Cardiac arrest [Unknown]
